FAERS Safety Report 7210261-1 (Version None)
Quarter: 2011Q1

REPORT INFORMATION
  Report Type: 
  Country: None (occurrence: None)
  Receive Date: 20110105
  Receipt Date: 20101231
  Transmission Date: 20110831
  Serious: Yes (Death, Hospitalization, Disabling)
  Sender: FDA-Public Use
  Company Number: JP-SANOFI-AVENTIS-2010SA011411

PATIENT
  Age: 58 Year
  Sex: Male

DRUGS (6)
  1. ELPLAT [Suspect]
     Indication: COLON CANCER METASTATIC
     Route: 041
     Dates: start: 20091217, end: 20091217
  2. XELODA [Suspect]
     Indication: COLON CANCER METASTATIC
     Route: 048
     Dates: start: 20091217, end: 20091217
  3. XELODA [Suspect]
     Route: 048
  4. AVASTIN [Suspect]
     Route: 041
  5. ELPLAT [Suspect]
     Route: 041
  6. AVASTIN [Suspect]
     Indication: COLON CANCER METASTATIC
     Route: 041
     Dates: start: 20091217, end: 20091217

REACTIONS (2)
  - NEPHROTIC SYNDROME [None]
  - DISEASE PROGRESSION [None]
